FAERS Safety Report 11469751 (Version 1)
Quarter: 2015Q3

REPORT INFORMATION
  Report Type: Spontaneous
  Country: US (occurrence: US)
  Receive Date: 20150908
  Receipt Date: 20150908
  Transmission Date: 20151125
  Serious: No
  Sender: FDA-Public Use
  Company Number: US-JNJFOC-20150803332

PATIENT
  Age: 73 Year
  Sex: Female
  Weight: 99.79 kg

DRUGS (2)
  1. ZYRTEC 10MG IR TABLET [Suspect]
     Active Substance: CETIRIZINE HYDROCHLORIDE
     Indication: SEASONAL ALLERGY
     Dosage: 10 MG PER TABLET, 1-2 TABLETS DAILY
     Route: 048
     Dates: start: 20150804
  2. ZYRTEC 10MG IR TABLET [Suspect]
     Active Substance: CETIRIZINE HYDROCHLORIDE
     Route: 048

REACTIONS (2)
  - Fatigue [Unknown]
  - Accidental overdose [Unknown]

NARRATIVE: CASE EVENT DATE: 20150805
